FAERS Safety Report 8789800 (Version 4)
Quarter: 2012Q4

REPORT INFORMATION
  Report Type: 
  Country: US (occurrence: US)
  Receive Date: 20120917
  Receipt Date: 20121024
  Transmission Date: 20130627
  Serious: Yes (Hospitalization)
  Sender: FDA-Public Use
  Company Number: US-ACTELION-A-US2012-62695

PATIENT
  Age: 73 Year
  Sex: Female

DRUGS (2)
  1. TRACLEER [Suspect]
     Indication: PULMONARY ARTERIAL HYPERTENSION
     Dosage: UNK
     Route: 048
  2. ASPIRIN [Concomitant]

REACTIONS (7)
  - Fall [Unknown]
  - Spinal fusion surgery [Unknown]
  - Arteriosclerosis coronary artery [Unknown]
  - Intervertebral disc disorder [Unknown]
  - Catheterisation cardiac [Unknown]
  - Nasal congestion [Unknown]
  - Transfusion [Unknown]
